FAERS Safety Report 25522439 (Version 1)
Quarter: 2025Q3

REPORT INFORMATION
  Report Type: Spontaneous
  Country: EU (occurrence: EU)
  Receive Date: 20250707
  Receipt Date: 20250707
  Transmission Date: 20251020
  Serious: No
  Sender: ALKEM
  Company Number: EU-ALKEM LABORATORIES LIMITED-FR-ALKEM-2025-01700

PATIENT
  Age: 59 Year
  Sex: Male

DRUGS (2)
  1. DRONABINOL [Suspect]
     Active Substance: DRONABINOL
     Indication: Central pain syndrome
     Dosage: 2.5 MILLIGRAM, BID (TWICE DAILY), CAPSULE MOLLE
     Route: 048
     Dates: start: 20250108
  2. GABAPENTIN [Concomitant]
     Active Substance: GABAPENTIN
     Indication: Central pain syndrome
     Dosage: 2400 MILLIGRAM, QD (DAILY), (600 - 600 - 1200 MILLIGRAM)
     Route: 048
     Dates: start: 20210506

REACTIONS (4)
  - Fatigue [Not Recovered/Not Resolved]
  - Disturbance in attention [Unknown]
  - Memory impairment [Not Recovered/Not Resolved]
  - Nausea [Recovered/Resolved]

NARRATIVE: CASE EVENT DATE: 20250108
